FAERS Safety Report 19405076 (Version 3)
Quarter: 2021Q4

REPORT INFORMATION
  Report Type: Spontaneous
  Country: DE (occurrence: DE)
  Receive Date: 20210611
  Receipt Date: 20211216
  Transmission Date: 20220303
  Serious: Yes (Other)
  Sender: FDA-Public Use
  Company Number: DE-AMGEN-DEUNI2021081582

PATIENT
  Age: 77 Year
  Sex: Female
  Weight: 66 kg

DRUGS (38)
  1. LEUCOVORIN [Suspect]
     Active Substance: LEUCOVORIN
     Indication: Colorectal cancer metastatic
     Dosage: 680 MILLIGRAM
     Route: 065
     Dates: start: 20200902
  2. LEUCOVORIN [Suspect]
     Active Substance: LEUCOVORIN
     Dosage: 640 MILLIGRAM
     Route: 065
     Dates: start: 20210324
  3. OXALIPLATIN [Suspect]
     Active Substance: OXALIPLATIN
     Indication: Colorectal cancer metastatic
     Dosage: 115 MILLIGRAM
     Route: 065
     Dates: start: 20200902
  4. OXALIPLATIN [Suspect]
     Active Substance: OXALIPLATIN
     Dosage: 144 MILLIGRAM
     Route: 065
     Dates: start: 20200916
  5. FLUOROURACIL [Suspect]
     Active Substance: FLUOROURACIL
     Indication: Colorectal cancer metastatic
     Dosage: 4080 MILLIGRAM
     Route: 042
     Dates: start: 20200902
  6. FLUOROURACIL [Suspect]
     Active Substance: FLUOROURACIL
     Dosage: 3840 MILLIGRAM
     Route: 042
     Dates: start: 20210324
  7. VECTIBIX [Suspect]
     Active Substance: PANITUMUMAB
     Indication: Colorectal cancer metastatic
     Dosage: 400 MILLIGRAM
     Route: 042
     Dates: start: 20200902
  8. VECTIBIX [Suspect]
     Active Substance: PANITUMUMAB
     Dosage: 360 MILLIGRAM
     Route: 042
     Dates: start: 20210324
  9. AKYNZEO [Concomitant]
     Active Substance: NETUPITANT\PALONOSETRON HYDROCHLORIDE
     Indication: Product used for unknown indication
     Dosage: 300 MILLIGRAM (CYCLICAL)
     Route: 048
     Dates: start: 20200902
  10. ALPHA LIPON [Concomitant]
     Indication: Tremor
     Dosage: 600 MILLIGRAM
     Route: 048
     Dates: start: 20210210
  11. AMLODIPINE [Concomitant]
     Active Substance: AMLODIPINE BESYLATE
     Indication: Hypertension
     Dosage: 2.5 MILLIGRAM, ONCE A DAY
     Route: 048
     Dates: start: 2020, end: 20210118
  12. ATROPINE [Concomitant]
     Active Substance: ATROPINE
     Indication: Product used for unknown indication
     Dosage: 0.25 MILLIGRAM (CYCLICAL)
     Route: 058
     Dates: start: 20201209, end: 20210421
  13. BRICANYL [Concomitant]
     Active Substance: TERBUTALINE SULFATE
     Indication: Bronchospasm
     Dosage: 0.5 MILLIGRAM, ONCE A DAY
     Route: 058
     Dates: start: 20201028, end: 20201028
  14. CALCIUM [Concomitant]
     Active Substance: CALCIUM
     Indication: Hypocalcaemia
     Dosage: 100 MILLIGRAM, ONCE A DAY
     Route: 048
     Dates: start: 20201118
  15. CALCIGEN D3 [Concomitant]
     Indication: Hypocalcaemia
     Dosage: 2500 MILLIGRAM, ONCE A DAY
     Route: 048
     Dates: start: 20201123
  16. CEFPODOXIME [Concomitant]
     Active Substance: CEFPODOXIME
     Indication: C-reactive protein increased
     Dosage: 400 MILLIGRAM, ONCE A DAY
     Route: 048
     Dates: start: 20201112, end: 20201117
  17. DEXAMETHASONE [Concomitant]
     Active Substance: DEXAMETHASONE
     Indication: Product used for unknown indication
     Dosage: 8 MILLIGRAM (CYCLICAL)
     Route: 042
     Dates: start: 20200902, end: 20210505
  18. IRINOTECAN [Concomitant]
     Active Substance: IRINOTECAN
     Indication: Product used for unknown indication
     Dosage: UNK (288-300 MILLIGRAM, CYCLICAL)
     Route: 042
     Dates: start: 20201209, end: 20210505
  19. Jonosteril [Concomitant]
     Indication: Blood creatinine increased
     Dosage: 1 UNK, ONCE A DAY (500-1500 MILLILITER)
     Route: 042
     Dates: start: 20201104
  20. SODIUM PICOSULFATE [Concomitant]
     Active Substance: SODIUM PICOSULFATE
     Indication: Constipation
     Dosage: UNK (15 DROP, AS NECESSARY)
     Route: 048
     Dates: start: 20210120
  21. LOPERAMIDE [Concomitant]
     Active Substance: LOPERAMIDE
     Indication: Diarrhoea
     Dosage: 1.86 MILLIGRAM (AS NECESSARY)
     Route: 048
     Dates: start: 20200903
  22. MAGNESIUM OXIDE [Concomitant]
     Active Substance: MAGNESIUM OXIDE
     Indication: Hypomagnesaemia
     Dosage: 300 MILLIGRAM, ONCE A DAY
     Route: 048
     Dates: start: 20201118
  23. MCP [Concomitant]
     Active Substance: METOCLOPRAMIDE HYDROCHLORIDE
     Indication: Nausea
     Dosage: 10 MILLIGRAM (AS NECESSARY)
     Route: 048
     Dates: start: 20200902
  24. METOPROLOL [Concomitant]
     Active Substance: METOPROLOL
     Indication: Hypertension
     Dosage: 50 MILLIGRAM, ONCE A DAY
     Route: 048
     Dates: start: 2020
  25. MINERALS\VITAMINS [Concomitant]
     Active Substance: MINERALS\VITAMINS
     Indication: Weight decreased
     Dosage: 125 MILLILITER (AS NECESSARY)
     Route: 048
     Dates: start: 20210120
  26. MINOCYCLINE [Concomitant]
     Active Substance: MINOCYCLINE HYDROCHLORIDE
     Indication: Product used for unknown indication
     Dosage: 100 MILLIGRAM, ONCE A DAY
     Route: 048
     Dates: start: 20200902
  27. MOVICOL [Concomitant]
     Active Substance: POLYETHYLENE GLYCOL 3350\POTASSIUM CHLORIDE\SODIUM BICARBONATE\SODIUM CHLORIDE
     Indication: Product used for unknown indication
     Dosage: 13 GRAM (AS NECESSARY)
     Route: 048
     Dates: start: 20210120
  28. Novamin [Concomitant]
     Indication: Pain
     Dosage: 2000 MILLIGRAM, ONCE A DAY
     Route: 048
     Dates: start: 2020
  29. ONDANSETRON [Concomitant]
     Active Substance: ONDANSETRON
     Indication: Nausea
     Dosage: 8 MILLIGRAM, ONCE A DAY
     Route: 042
     Dates: start: 20201111
  30. PANTOPRAZOLE SODIUM [Concomitant]
     Active Substance: PANTOPRAZOLE SODIUM
     Indication: Chronic gastritis
     Dosage: 40 MILLIGRAM, ONCE A DAY
     Route: 048
     Dates: start: 20200910
  31. POTASSIUM [Concomitant]
     Active Substance: POTASSIUM
     Indication: Hypokalaemia
     Dosage: 20 MILLILITER (AS NECESSARY)
     Route: 042
     Dates: start: 20201112, end: 20201118
  32. POTASSIUM [Concomitant]
     Active Substance: POTASSIUM
     Dosage: UNK (9999)
     Route: 065
     Dates: start: 20210113, end: 20210118
  33. PREDNISOLONE [Concomitant]
     Active Substance: PREDNISOLONE
     Indication: Bronchospasm
     Dosage: 200 MILLIGRAM, ONCE A DAY
     Route: 042
     Dates: start: 20201028, end: 20201028
  34. Riopan [Concomitant]
     Indication: Abdominal pain upper
     Dosage: 10 MILLILITER (AS NECESSARY)
     Route: 048
     Dates: start: 20201014
  35. TRIMIPRAMINE MALEATE [Concomitant]
     Active Substance: TRIMIPRAMINE MALEATE
     Indication: Depression
     Dosage: 100 MILLIGRAM, ONCE A DAY
     Route: 048
  36. SIMVASTATIN [Concomitant]
     Active Substance: SIMVASTATIN
     Indication: Metabolic disorder
     Dosage: 20 MILLIGRAM, ONCE A DAY
     Route: 048
  37. Unacid [Concomitant]
     Indication: Infection
     Dosage: 3 GRAM, ONCE A DAY
     Route: 042
     Dates: start: 20210113, end: 20210115
  38. ALIZAPRIDE HYDROCHLORIDE [Concomitant]
     Active Substance: ALIZAPRIDE HYDROCHLORIDE
     Indication: Nausea
     Dosage: 50 MILLIGRAM (AS NECESSARY)
     Route: 048
     Dates: start: 20200910

REACTIONS (1)
  - Cachexia [Recovered/Resolved]

NARRATIVE: CASE EVENT DATE: 20210505
